FAERS Safety Report 5325292-6 (Version None)
Quarter: 2007Q2

REPORT INFORMATION
  Report Type: 
  Country: None (occurrence: None)
  Receive Date: 20070515
  Receipt Date: 20070424
  Transmission Date: 20071010
  Serious: Yes (Other)
  Sender: FDA-Public Use
  Company Number: JP-ROCHE-492943

PATIENT
  Age: 13 Year
  Sex: Male

DRUGS (5)
  1. TAMIFLU [Suspect]
     Route: 048
     Dates: start: 20070302, end: 20070302
  2. TAMIFLU [Suspect]
     Route: 048
     Dates: start: 20070228, end: 20070301
  3. KENTAN [Concomitant]
     Route: 048
     Dates: start: 20070228
  4. HUSCODE [Concomitant]
     Route: 048
     Dates: start: 20070228
  5. CALONAL [Concomitant]
     Route: 048
     Dates: start: 20070228

REACTIONS (1)
  - AGGRESSION [None]
